FAERS Safety Report 14144785 (Version 1)
Quarter: 2017Q4

REPORT INFORMATION
  Report Type: Spontaneous
  Country: US (occurrence: US)
  Receive Date: 20171031
  Receipt Date: 20171031
  Transmission Date: 20180321
  Serious: Yes (Other)
  Sender: FDA-Public Use
  Company Number: US-WEST-WARD PHARMACEUTICALS CORP.-US-H14001-17-02304

PATIENT
  Age: 33 Year
  Sex: Female
  Weight: 52.21 kg

DRUGS (4)
  1. MEFLOQUINE HYDROCHLORIDE. [Suspect]
     Active Substance: MEFLOQUINE HYDROCHLORIDE
     Route: 048
     Dates: start: 20170609, end: 20170609
  2. ELYSIUM [Concomitant]
     Indication: PRODUCT USED FOR UNKNOWN INDICATION
     Route: 065
  3. ELYFEM 20 [Concomitant]
     Active Substance: ETHINYL ESTRADIOL\LEVONORGESTREL
     Indication: CONTRACEPTION
     Route: 065
  4. MEFLOQUINE HYDROCHLORIDE. [Suspect]
     Active Substance: MEFLOQUINE HYDROCHLORIDE
     Indication: MALARIA PROPHYLAXIS
     Route: 048
     Dates: start: 20170602, end: 20170602

REACTIONS (2)
  - Seizure [Recovered/Resolved]
  - Amnesia [Recovered/Resolved]

NARRATIVE: CASE EVENT DATE: 20170615
